FAERS Safety Report 4293290-X (Version None)
Quarter: 2004Q1

REPORT INFORMATION
  Report Type: 
  Country: None (occurrence: None)
  Receive Date: 20040210
  Receipt Date: 20040210
  Transmission Date: 20041129
  Serious: Yes (Hospitalization)
  Sender: FDA-Public Use
  Company Number: None

PATIENT
  Age: 69 Year
  Sex: Male
  Weight: 73 kg

DRUGS (13)
  1. SINEMET [Suspect]
     Indication: PARKINSON'S DISEASE
     Dosage: 1 TAB TID
  2. DIPHENHYDRAMINE HCL [Suspect]
  3. PRAMIPEXOLE 0.5MG [Suspect]
     Dosage: 1/2 TAB QID
  4. LOVASTATIN [Concomitant]
  5. CITALOPRAM [Concomitant]
  6. SINEMET [Concomitant]
  7. ROSIGLITAZONE MALEATE [Concomitant]
  8. ZANTAC [Concomitant]
  9. CA/VIT D [Concomitant]
  10. ASPIRIN [Concomitant]
  11. QUETIAPINE [Concomitant]
  12. HUMULIN 70/30 [Concomitant]
  13. BENADRYL [Concomitant]

REACTIONS (4)
  - DISORIENTATION [None]
  - HALLUCINATION [None]
  - MEMORY IMPAIRMENT [None]
  - MOBILITY DECREASED [None]
